FAERS Safety Report 7524432-8 (Version None)
Quarter: 2011Q2

REPORT INFORMATION
  Report Type: 
  Country: None (occurrence: None)
  Receive Date: 20110606
  Receipt Date: 20110601
  Transmission Date: 20111010
  Serious: Yes (Life-Threatening, Other)
  Sender: FDA-Public Use
  Company Number: PHHY2011CA43523

PATIENT
  Sex: Male

DRUGS (4)
  1. RISPERIDONE [Concomitant]
  2. VALPROATE SODIUM [Concomitant]
  3. CLOZAPINE [Suspect]
     Indication: SCHIZOPHRENIA
     Dosage: 500 MG, UNK
     Route: 048
     Dates: start: 19990618
  4. CITALOPRAM [Concomitant]

REACTIONS (2)
  - MALAISE [None]
  - ACUTE MYELOID LEUKAEMIA [None]
